FAERS Safety Report 23995120 (Version 2)
Quarter: 2024Q3

REPORT INFORMATION
  Report Type: Report from Study
  Country: US (occurrence: US)
  Receive Date: 20240620
  Receipt Date: 20240704
  Transmission Date: 20241017
  Serious: Yes (Other)
  Sender: ROCHE
  Company Number: US-ROCHE-10000002004

PATIENT
  Age: 49 Year
  Sex: Female

DRUGS (3)
  1. MABTHERA [Suspect]
     Active Substance: RITUXIMAB
     Indication: Cryoglobulinaemia
     Dosage: INFUSE 1000MG INTRAVENOUSLY EVERY 3 MONTH(S)
     Route: 042
  2. MABTHERA [Suspect]
     Active Substance: RITUXIMAB
     Indication: Nephrotic syndrome
  3. MABTHERA [Suspect]
     Active Substance: RITUXIMAB
     Indication: Sjogren^s syndrome

REACTIONS (2)
  - Colon cancer [Unknown]
  - Off label use [Unknown]
